FAERS Safety Report 9197269 (Version 2)
Quarter: 2013Q2

REPORT INFORMATION
  Report Type: Spontaneous
  Country: US (occurrence: US)
  Receive Date: 20130328
  Receipt Date: 20130412
  Transmission Date: 20140414
  Serious: Yes (Hospitalization)
  Sender: FDA-Public Use
  Company Number: US-BAYER-2013-035361

PATIENT
  Age: 41 Year
  Sex: Female

DRUGS (15)
  1. YASMIN [Suspect]
  2. OCELLA [Suspect]
  3. BACTRIM DS [Concomitant]
  4. BACTROBAN [Concomitant]
  5. BENICAR HCT [Concomitant]
     Dosage: 40-12.5
     Route: 048
  6. WELLBUTRIN XL [Concomitant]
     Dosage: 150 MG, UNK
     Route: 048
  7. LEXAPRO [Concomitant]
     Dosage: 20 MG, UNK
     Route: 048
  8. FLUCONAZOLE [Concomitant]
     Dosage: 100 MG, UNK
     Route: 048
     Dates: start: 20051026
  9. RIFAMPIN [Concomitant]
     Dosage: 300 MG, UNK
     Route: 048
     Dates: start: 20051006
  10. RIFAMPIN [Concomitant]
     Dosage: 300 MG, UNK
     Dates: start: 20051026
  11. MINOCYCLINE [Concomitant]
     Dosage: 100 MG, UNK
     Route: 048
     Dates: start: 20051006
  12. DOXYCYCLINE [Concomitant]
     Dosage: 100 MG, UNK
     Route: 048
     Dates: start: 20051026
  13. HYDROCODONE W/APAP [Concomitant]
     Dosage: 7.5/500
     Route: 048
     Dates: start: 20051206
  14. LORAZEPAM [Concomitant]
     Dosage: 1 MG, UNK
     Route: 048
  15. MECLIZINE [Concomitant]
     Dosage: 25 MG, UNK
     Route: 048
     Dates: start: 20051216

REACTIONS (4)
  - Subclavian vein thrombosis [None]
  - Axillary vein thrombosis [None]
  - Deep vein thrombosis [None]
  - Thrombophlebitis superficial [None]
